FAERS Safety Report 10255904 (Version 2)
Quarter: 2014Q2

REPORT INFORMATION
  Report Type: Spontaneous
  Country: US (occurrence: US)
  Receive Date: 20140624
  Receipt Date: 20140624
  Transmission Date: 20141212
  Serious: Yes (Hospitalization, Other)
  Sender: FDA-Public Use
  Company Number: US-BRISTOL-MYERS SQUIBB COMPANY-20624037

PATIENT
  Age: 68 Year
  Sex: Female
  Weight: 93.42 kg

DRUGS (9)
  1. BYDUREON [Suspect]
     Indication: TYPE 2 DIABETES MELLITUS
     Route: 058
     Dates: start: 20140402, end: 201404
  2. LISINOPRIL [Concomitant]
     Route: 048
  3. HUMALOG [Concomitant]
     Dosage: 1DF: 40 UNITS NOS
     Route: 058
  4. METFORMIN HCL [Concomitant]
     Route: 048
  5. OMEPRAZOLE [Concomitant]
     Route: 048
  6. DULOXETINE HCL [Concomitant]
     Dosage: 1DF: 1TAB
     Route: 048
  7. ASPIRIN [Concomitant]
     Route: 048
  8. SIMVASTATIN [Concomitant]
     Route: 048
  9. DONEPEZIL [Concomitant]
     Dosage: 1DF: 1TAB
     Route: 048

REACTIONS (6)
  - Pneumonia [Unknown]
  - Blood glucose increased [Unknown]
  - Memory impairment [Not Recovered/Not Resolved]
  - Confusional state [Unknown]
  - Underdose [Unknown]
  - Gastrointestinal disorder [Unknown]
